FAERS Safety Report 17459870 (Version 1)
Quarter: 2020Q1

REPORT INFORMATION
  Report Type: Spontaneous
  Country: US (occurrence: US)
  Receive Date: 20200212
  Receipt Date: 20200212
  Transmission Date: 20200409
  Serious: Yes (Other)
  Sender: FDA-Public Use
  Company Number: None

PATIENT
  Age: 41 Year
  Sex: Female
  Weight: 70.31 kg

DRUGS (1)
  1. MIRENA [Suspect]
     Active Substance: LEVONORGESTREL

REACTIONS (8)
  - Hot flush [None]
  - Muscle spasms [None]
  - Vaginal haemorrhage [None]
  - Fatigue [None]
  - Abdominal distension [None]
  - Complication of device removal [None]
  - Mood altered [None]
  - Weight increased [None]

NARRATIVE: CASE EVENT DATE: 20200117
